FAERS Safety Report 4588851-4 (Version None)
Quarter: 2005Q1

REPORT INFORMATION
  Report Type: 
  Country: None (occurrence: None)
  Receive Date: 20050222
  Receipt Date: 20050216
  Transmission Date: 20050727
  Serious: Yes (Other)
  Sender: FDA-Public Use
  Company Number: US-GLAXOSMITHKLINE-A0546360A

PATIENT
  Age: 73 Year
  Sex: Female

DRUGS (7)
  1. MELPHALAN [Suspect]
     Indication: MULTIPLE MYELOMA
  2. RADIATION THERAPY [Suspect]
  3. PREDNISONE [Suspect]
  4. INSULIN [Concomitant]
  5. ASPIRIN [Concomitant]
  6. DURAGESIC-100 [Concomitant]
  7. PERCOCET [Concomitant]

REACTIONS (3)
  - LEUKAEMIA PLASMACYTIC [None]
  - PANCYTOPENIA [None]
  - PNEUMONIA [None]
